FAERS Safety Report 9173671 (Version 2)
Quarter: 2013Q2

REPORT INFORMATION
  Report Type: Spontaneous
  Country: IT (occurrence: IT)
  Receive Date: 20130320
  Receipt Date: 20130424
  Transmission Date: 20140414
  Serious: Yes (Hospitalization)
  Sender: FDA-Public Use
  Company Number: IT-B.I. PHARMACEUTICALS,INC./RIDGEFIELD-2013-BI-07442YA

PATIENT
  Age: 98 Year
  Sex: Male
  Weight: 70 kg

DRUGS (5)
  1. TAMSULOSINA [Suspect]
     Indication: BENIGN PROSTATIC HYPERPLASIA
     Route: 048
     Dates: start: 20100101, end: 20130218
  2. IPAMIX (INDAPAMIDE) [Suspect]
     Indication: HYPERTENSION
     Route: 048
     Dates: start: 20100101, end: 20130218
  3. CARDIO ASPIRIN (ACETYLSALICYLIC ACID) [Concomitant]
     Route: 048
     Dates: start: 20100101, end: 20130218
  4. ZANEDIP (LERCANIDIPINE HYDROCHLORIDE) [Concomitant]
     Indication: HYPERTENSION
     Route: 048
     Dates: start: 20100101, end: 20130218
  5. PROSCAR [Concomitant]
     Indication: BENIGN PROSTATIC HYPERPLASIA
     Route: 048
     Dates: start: 20100101, end: 20130218

REACTIONS (2)
  - Hypotension [Not Recovered/Not Resolved]
  - Hypokalaemia [Not Recovered/Not Resolved]
